FAERS Safety Report 11433019 (Version 2)
Quarter: 2015Q4

REPORT INFORMATION
  Report Type: Spontaneous
  Country: US (occurrence: None)
  Receive Date: 20150827
  Receipt Date: 20151218
  Transmission Date: 20160304
  Serious: Yes (Life-Threatening, Hospitalization, Other)
  Sender: FDA-Public Use
  Company Number: US2015GSK121785

PATIENT
  Age: 48 Year
  Sex: Female

DRUGS (8)
  1. XANAX [Concomitant]
     Active Substance: ALPRAZOLAM
  2. TUMS [Suspect]
     Active Substance: CALCIUM CARBONATE
     Indication: DYSPEPSIA
     Dosage: TID WITH MEALS
     Dates: start: 201409
  3. NEURONTIN [Concomitant]
     Active Substance: GABAPENTIN
  4. FLEXERIL [Concomitant]
     Active Substance: CYCLOBENZAPRINE HYDROCHLORIDE
  5. OXYCODONE [Concomitant]
     Active Substance: OXYCODONE
  6. TUMS [Suspect]
     Active Substance: CALCIUM CARBONATE
     Indication: NAUSEA
     Dosage: TID WITH MEALS
     Dates: start: 201409
  7. TUMS [Suspect]
     Active Substance: CALCIUM CARBONATE
     Indication: ABDOMINAL DISCOMFORT
     Dosage: TID WITH MEALS
     Dates: start: 201409
  8. PROTONIX [Concomitant]
     Active Substance: PANTOPRAZOLE SODIUM

REACTIONS (40)
  - Encephalopathy [None]
  - Loss of employment [None]
  - Confusional state [None]
  - Lethargy [None]
  - Nausea [None]
  - Abdominal discomfort [None]
  - Anxiety [None]
  - Hallucination [None]
  - Memory impairment [None]
  - Drug ineffective [None]
  - Hypercalcaemia [None]
  - Myalgia [None]
  - Fatigue [None]
  - Amnesia [None]
  - Emotional distress [None]
  - Mental impairment [None]
  - Muscle twitching [None]
  - Muscle contracture [None]
  - Muscle spasms [None]
  - Mental status changes [None]
  - Sleep disorder [None]
  - Abnormal behaviour [None]
  - Renal impairment [None]
  - Bone pain [None]
  - Urinary incontinence [None]
  - Constipation [None]
  - Acute kidney injury [None]
  - Asthenia [None]
  - Dyspepsia [None]
  - Dementia [None]
  - Dehydration [None]
  - Disease recurrence [None]
  - Disorientation [None]
  - Self esteem decreased [None]
  - Blood thyroid stimulating hormone decreased [None]
  - Depressed level of consciousness [None]
  - Adverse drug reaction [None]
  - Cognitive disorder [None]
  - Unresponsive to stimuli [None]
  - Crying [None]

NARRATIVE: CASE EVENT DATE: 201410
